FAERS Safety Report 9902479 (Version 2)
Quarter: 2014Q1

REPORT INFORMATION
  Report Type: Spontaneous
  Country: CA (occurrence: CA)
  Receive Date: 20140217
  Receipt Date: 20140217
  Transmission Date: 20141002
  Serious: Yes (Hospitalization, Other)
  Sender: FDA-Public Use
  Company Number: CA-NOVOPROD-393328

PATIENT
  Age: 58 Year
  Sex: Male
  Weight: 66 kg

DRUGS (1)
  1. LEVEMIR PENFILL [Suspect]
     Indication: PRODUCT USED FOR UNKNOWN INDICATION
     Dosage: 44 U, QD (22 UNITS IN THE MORNING, 22 UNITS IN THE EVENING)
     Route: 065

REACTIONS (6)
  - Myocardial infarction [Unknown]
  - Vomiting [Unknown]
  - Loss of consciousness [Unknown]
  - Product container issue [Unknown]
  - Blood glucose increased [Recovered/Resolved]
  - Nausea [Unknown]
